FAERS Safety Report 9309500 (Version 1)
Quarter: 2013Q2

REPORT INFORMATION
  Report Type: Spontaneous
  Country: US (occurrence: US)
  Receive Date: 20130525
  Receipt Date: 20130525
  Transmission Date: 20140414
  Serious: No
  Sender: FDA-Public Use
  Company Number: US-BRISTOL-MYERS SQUIBB COMPANY-18583914

PATIENT
  Sex: Female

DRUGS (3)
  1. BYDUREON 2MG VIAL + SYRINGE [Suspect]
     Indication: TYPE 2 DIABETES MELLITUS
     Route: 058
     Dates: end: 201210
  2. BYETTA PEN DISPOSABLE [Suspect]
     Indication: TYPE 2 DIABETES MELLITUS
     Route: 058
  3. OTHER DRUGS FOR FUNCTIONAL BOWEL DISORDERS [Concomitant]
     Indication: CONSTIPATION

REACTIONS (5)
  - Glycosylated haemoglobin decreased [Unknown]
  - Injection site nodule [Unknown]
  - Constipation [Unknown]
  - Abdominal pain [Unknown]
  - Intentional drug misuse [Not Recovered/Not Resolved]
